FAERS Safety Report 9775137 (Version 1)
Quarter: 2013Q4

REPORT INFORMATION
  Report Type: Spontaneous
  Country: US (occurrence: US)
  Receive Date: 20131220
  Receipt Date: 20131220
  Transmission Date: 20140711
  Serious: No
  Sender: FDA-Public Use
  Company Number: US-ABBVIE-12P-163-1022980-00

PATIENT
  Age: 62 Year
  Sex: Male
  Weight: 124.85 kg

DRUGS (6)
  1. LUPRON DEPOT [Suspect]
     Indication: PROSTATE CANCER STAGE IV
     Dosage: LOT # AND EXPIRATION WERE UNAVAILABLE, GIVEN IN MD OFFICE.
     Dates: start: 2007
  2. RADIOACTIVE STOTHIUM 89 [Suspect]
     Indication: PROSTATE CANCER
     Dates: start: 20121116, end: 20121116
  3. MORPHINE SULFATE [Concomitant]
     Indication: PAIN
  4. MS CONTIN [Concomitant]
     Indication: PAIN
  5. HYDROCODONE [Concomitant]
     Indication: PAIN
  6. UNKNOWN HYPERTENSION MEDICATIONS [Concomitant]
     Indication: HYPERTENSION
     Route: 048

REACTIONS (2)
  - Prostatic specific antigen increased [Not Recovered/Not Resolved]
  - Weight increased [Not Recovered/Not Resolved]
